FAERS Safety Report 4850654-0 (Version None)
Quarter: 2005Q4

REPORT INFORMATION
  Report Type: 
  Country: None (occurrence: None)
  Receive Date: 20051212
  Receipt Date: 20050321
  Transmission Date: 20060501
  Serious: No
  Sender: FDA-Public Use
  Company Number: US-BRISTOL-MYERS SQUIBB COMPANY-12904090

PATIENT
  Age: 51 Year
  Sex: Female
  Weight: 76 kg

DRUGS (4)
  1. CHOLESTYRAMINE [Suspect]
     Indication: BLOOD CHOLESTEROL INCREASED
     Route: 048
     Dates: start: 20050121
  2. SYNTHROID [Concomitant]
  3. CELEXA [Concomitant]
  4. MULTI-VITAMIN [Concomitant]

REACTIONS (4)
  - ABDOMINAL PAIN [None]
  - CONSTIPATION [None]
  - COUGH [None]
  - DIARRHOEA [None]
